FAERS Safety Report 7409973-6 (Version None)
Quarter: 2011Q2

REPORT INFORMATION
  Report Type: 
  Country: None (occurrence: None)
  Receive Date: 20110412
  Receipt Date: 20110404
  Transmission Date: 20111010
  Serious: Yes (Hospitalization)
  Sender: FDA-Public Use
  Company Number: FR-TEVA-275376ISR

PATIENT
  Sex: Female
  Weight: 72 kg

DRUGS (11)
  1. LENALIDOMIDE (CC-5013) [Suspect]
     Route: 048
     Dates: end: 20110117
  2. BROMAZEPAM [Concomitant]
     Indication: INSOMNIA
     Route: 048
     Dates: start: 20090110
  3. ATORVASTATIN CALCIUM [Concomitant]
     Indication: HYPERCHOLESTEROLAEMIA
     Route: 048
     Dates: start: 20070801
  4. FLUINDIONE [Concomitant]
     Indication: PROPHYLAXIS
     Dosage: 5 TO 10 MG
     Route: 048
     Dates: start: 20090119
  5. DEXAMETHASONE [Suspect]
     Indication: MULTIPLE MYELOMA
     Dates: start: 20081005
  6. FUROSEMIDE [Concomitant]
     Indication: OEDEMA PERIPHERAL
     Dosage: 40 MILLIGRAM;
     Route: 048
     Dates: start: 20090904
  7. LENALIDOMIDE (CC-5013) [Suspect]
     Indication: MULTIPLE MYELOMA
     Route: 048
     Dates: start: 20081005
  8. CALCIUM [Concomitant]
     Indication: HYPOCALCAEMIA
     Route: 048
     Dates: start: 20090213
  9. DEXAMETHASONE [Suspect]
     Dates: end: 20110111
  10. PARACETAMOL [Concomitant]
     Indication: BONE PAIN
     Route: 048
     Dates: start: 20080912
  11. ATENOLOL [Concomitant]
     Indication: ATRIAL FIBRILLATION
     Route: 048
     Dates: start: 20090320

REACTIONS (1)
  - SKIN ULCER [None]
